FAERS Safety Report 23581655 (Version 5)
Quarter: 2025Q2

REPORT INFORMATION
  Report Type: Report from Study
  Country: US (occurrence: US)
  Receive Date: 20240229
  Receipt Date: 20250603
  Transmission Date: 20250716
  Serious: Yes (Hospitalization)
  Sender: TAKEDA
  Company Number: US-TAKEDA-US202024951

PATIENT
  Sex: Female
  Weight: 73 kg

DRUGS (32)
  1. HUMAN IMMUNOGLOBULIN G [Suspect]
     Active Substance: HUMAN IMMUNOGLOBULIN G
     Indication: IgG deficiency
     Dosage: 8 GRAM, 1/WEEK
     Dates: start: 20200122
  2. HUMAN IMMUNOGLOBULIN G [Suspect]
     Active Substance: HUMAN IMMUNOGLOBULIN G
     Indication: Hypergammaglobulinaemia
     Dosage: 8 GRAM, 1/WEEK
     Dates: start: 20200123
  3. HUMAN IMMUNOGLOBULIN G [Suspect]
     Active Substance: HUMAN IMMUNOGLOBULIN G
     Indication: Immune system disorder
     Dosage: 8 GRAM, 1/WEEK
     Dates: start: 20230601
  4. HUMAN IMMUNOGLOBULIN G [Suspect]
     Active Substance: HUMAN IMMUNOGLOBULIN G
     Dosage: 8 GRAM, 1/WEEK
  5. XEMBIFY [Suspect]
     Active Substance: HUMAN IMMUNOGLOBULIN G
     Indication: Product used for unknown indication
  6. ACETAMINOPHEN [Concomitant]
     Active Substance: ACETAMINOPHEN
     Indication: Product used for unknown indication
  7. EPINEPHRINE [Concomitant]
     Active Substance: EPINEPHRINE
     Indication: Product used for unknown indication
  8. ACYCLOVIR [Concomitant]
     Active Substance: ACYCLOVIR
  9. DULERA [Concomitant]
     Active Substance: FORMOTEROL FUMARATE DIHYDRATE\MOMETASONE FUROATE
  10. AMLODIPINE BESYLATE [Concomitant]
     Active Substance: AMLODIPINE BESYLATE
     Indication: Product used for unknown indication
  11. LEVOTHYROXINE SODIUM [Concomitant]
     Active Substance: LEVOTHYROXINE SODIUM
     Indication: Product used for unknown indication
  12. LIDOCAINE [Concomitant]
     Active Substance: LIDOCAINE
  13. FLUTICASONE PROPIONATE [Concomitant]
     Active Substance: FLUTICASONE PROPIONATE
  14. ISOSORBIDE MONONITRATE [Concomitant]
     Active Substance: ISOSORBIDE MONONITRATE
  15. METOPROLOL SUCCINATE [Concomitant]
     Active Substance: METOPROLOL SUCCINATE
  16. NITROGLYCERIN [Concomitant]
     Active Substance: NITROGLYCERIN
  17. DIPHENHYDRAMINE HYDROCHLORIDE [Concomitant]
     Active Substance: DIPHENHYDRAMINE HYDROCHLORIDE
  18. DIPHENHYDRAMINE [Concomitant]
     Active Substance: DIPHENHYDRAMINE
     Indication: Product used for unknown indication
  19. ALBUTEROL SULFATE [Concomitant]
     Active Substance: ALBUTEROL SULFATE
  20. TRAZODONE HCL [Concomitant]
     Active Substance: TRAZODONE HYDROCHLORIDE
  21. VITAMIN D3 [Concomitant]
     Active Substance: CHOLECALCIFEROL
     Indication: Product used for unknown indication
  22. ALOE [Concomitant]
     Active Substance: ALOE
  23. FISH OIL [Concomitant]
     Active Substance: FISH OIL
     Indication: Product used for unknown indication
  24. Lmx [Concomitant]
     Indication: Product used for unknown indication
  25. VITAMIN C [Concomitant]
     Active Substance: ASCORBIC ACID
     Indication: Product used for unknown indication
  26. NIACIN [Concomitant]
     Active Substance: NIACIN
     Indication: Product used for unknown indication
  27. SELENIUM [Concomitant]
     Active Substance: SELENIUM
     Indication: Product used for unknown indication
  28. MANGANESE CHLORIDE [Concomitant]
     Active Substance: MANGANESE CHLORIDE
     Indication: Product used for unknown indication
  29. Caltrate 600+d3 plus minerals [Concomitant]
     Indication: Product used for unknown indication
  30. Glucosamine/chondroitin [Concomitant]
     Indication: Product used for unknown indication
  31. VITAMIN E [Concomitant]
     Active Substance: .ALPHA.-TOCOPHEROL
     Indication: Product used for unknown indication
  32. FLUTICASONE [Concomitant]
     Active Substance: FLUTICASONE

REACTIONS (16)
  - Concussion [Unknown]
  - COVID-19 [Unknown]
  - Seasonal allergy [Not Recovered/Not Resolved]
  - Multiple allergies [Unknown]
  - Tendonitis [Unknown]
  - Injection site irritation [Unknown]
  - Infusion site discharge [Unknown]
  - Drug hypersensitivity [Unknown]
  - Infusion site irritation [Unknown]
  - Oral herpes [Unknown]
  - Asthma [Unknown]
  - Injection site swelling [Unknown]
  - Infusion site erythema [Unknown]
  - Infusion site pain [Not Recovered/Not Resolved]
  - Infusion site swelling [Unknown]
  - Urticaria [Unknown]
